FAERS Safety Report 13881335 (Version 1)
Quarter: 2017Q3

REPORT INFORMATION
  Report Type: Report from Study
  Country: US (occurrence: BR)
  Receive Date: 20170818
  Receipt Date: 20170818
  Transmission Date: 20171127
  Serious: Yes (Hospitalization, Other)
  Sender: FDA-Public Use
  Company Number: US-SUNOVION-2017SUN003636

PATIENT
  Age: 84 Year
  Sex: Male

DRUGS (1)
  1. INDACATEROL AND GLYCOPYRROLATE [Suspect]
     Active Substance: GLYCOPYRROLATE\INDACATEROL MALEATE
     Indication: EMPHYSEMA
     Route: 065

REACTIONS (5)
  - Pulmonary oedema [Unknown]
  - Malnutrition [Unknown]
  - Dyspnoea [Unknown]
  - Bronchitis [Unknown]
  - Cerebrovascular accident [Unknown]
